FAERS Safety Report 5955159-1 (Version None)
Quarter: 2008Q4

REPORT INFORMATION
  Report Type: 
  Country: None (occurrence: None)
  Receive Date: 20081117
  Receipt Date: 20071102
  Transmission Date: 20090506
  Serious: Yes (Other)
  Sender: FDA-Public Use
  Company Number: US-AMGEN-QUU247500

PATIENT
  Sex: Male
  Weight: 97.6 kg

DRUGS (4)
  1. ENBREL [Suspect]
     Indication: ANKYLOSING SPONDYLITIS
     Route: 058
     Dates: start: 20031101
  2. ATENOLOL [Concomitant]
  3. PROSCAR [Concomitant]
  4. INDOMETHACIN [Concomitant]

REACTIONS (1)
  - MALIGNANT MELANOMA STAGE I [None]
